FAERS Safety Report 4893615-8 (Version None)
Quarter: 2006Q1

REPORT INFORMATION
  Report Type: 
  Country: None (occurrence: None)
  Receive Date: 20060127
  Receipt Date: 20051213
  Transmission Date: 20060701
  Serious: Yes (Hospitalization, Other)
  Sender: FDA-Public Use
  Company Number: JP-SANOFI-SYNTHELABO-F01200502754

PATIENT
  Sex: Male
  Weight: 63 kg

DRUGS (3)
  1. OXALIPLATIN [Suspect]
     Indication: COLON CANCER
     Route: 042
     Dates: start: 20050624, end: 20050624
  2. FLUOROURACIL [Suspect]
     Dosage: 304.9 MG/M2 IV BOLUS AND 457.3 MG/M2 IV 22 HOURS CONTINUOUS INFUSION, Q2W
     Route: 042
     Dates: start: 20050624, end: 20050625
  3. CALCIUM LEVOFOLINATE [Suspect]
     Dosage: 76.2 MG/M2 INFUSION GIVEN ON DAYS 1+2 EACH CYCLE
     Route: 042
     Dates: start: 20050624, end: 20050625

REACTIONS (6)
  - ASCITES [None]
  - CONDITION AGGRAVATED [None]
  - DISSEMINATED INTRAVASCULAR COAGULATION [None]
  - GENERAL PHYSICAL HEALTH DETERIORATION [None]
  - HAEMOGLOBIN DECREASED [None]
  - THROMBOCYTOPENIA [None]
